FAERS Safety Report 11363156 (Version 1)
Quarter: 2015Q3

REPORT INFORMATION
  Report Type: Spontaneous
  Country: US (occurrence: None)
  Receive Date: 20150810
  Receipt Date: 20150810
  Transmission Date: 20151125
  Serious: Yes (Death, Hospitalization)
  Sender: FDA-Public Use
  Company Number: None

PATIENT
  Age: 9 Year
  Sex: Female
  Weight: 33.6 kg

DRUGS (4)
  1. CYTARABINE. [Suspect]
     Active Substance: CYTARABINE
     Indication: PRODUCT USED FOR UNKNOWN INDICATION
     Dates: end: 20150714
  2. DEXAMETHASONE. [Suspect]
     Active Substance: DEXAMETHASONE
     Dates: end: 20150730
  3. VINCRISTINE SULFATE. [Suspect]
     Active Substance: VINCRISTINE SULFATE
     Dates: end: 20150729
  4. ONCASPAR [Suspect]
     Active Substance: PEGASPARGASE
     Dates: end: 20150718

REACTIONS (10)
  - Tachypnoea [None]
  - Metabolic acidosis [None]
  - Lethargy [None]
  - Septic shock [None]
  - Colitis [None]
  - Abdominal distension [None]
  - Computerised tomogram abnormal [None]
  - Abdominal pain [None]
  - Tachycardia [None]
  - Gram stain positive [None]

NARRATIVE: CASE EVENT DATE: 20150730
